FAERS Safety Report 17900034 (Version 1)
Quarter: 2020Q2

REPORT INFORMATION
  Report Type: Spontaneous
  Country: US (occurrence: US)
  Receive Date: 20200615
  Receipt Date: 20200615
  Transmission Date: 20200714
  Serious: Yes (Hospitalization)
  Sender: FDA-Public Use
  Company Number: None

PATIENT
  Sex: Female

DRUGS (24)
  1. ANIX.J CKAV [Concomitant]
  2. APRISO [Concomitant]
     Active Substance: MESALAMINE
  3. BONJESTA [Concomitant]
     Active Substance: DOXYLAMINE SUCCINATE\PYRIDOXINE HYDROCHLORIDE
  4. BROM/PSE/DM [Concomitant]
  5. CEFDINIR. [Concomitant]
     Active Substance: CEFDINIR
  6. FLUCONAZOLE. [Concomitant]
     Active Substance: FLUCONAZOLE
  7. LEVOFLOXACIN. [Concomitant]
     Active Substance: LEVOFLOXACIN
  8. ONDANSETRON [Concomitant]
     Active Substance: ONDANSETRON
  9. PROMETHAZINE [Concomitant]
     Active Substance: PROMETHAZINE HYDROCHLORIDE
  10. ALBUTEROL AER [Concomitant]
  11. NASACORT ALR [Concomitant]
  12. HYDROCO/APAP [Concomitant]
     Active Substance: ACETAMINOPHEN\HYDROCODONE
  13. MESALAMINE. [Concomitant]
     Active Substance: MESALAMINE
  14. METRONIDAZOL [Concomitant]
     Active Substance: METRONIDAZOLE
  15. PRENATAL [Concomitant]
     Active Substance: VITAMINS
  16. AMOXICILLIN. [Concomitant]
     Active Substance: AMOXICILLIN
  17. ENTERAGAM [Concomitant]
     Active Substance: DIETARY SUPPLEMENT
  18. PREDNISONE. [Concomitant]
     Active Substance: PREDNISONE
  19. MAKENA [Suspect]
     Active Substance: HYDROXYPROGESTERONE CAPROATE
     Indication: PRENATAL CARE
     Route: 058
     Dates: start: 20200604
  20. DOXYCYCL HYC [Concomitant]
  21. PANTOPRAZOLE [Concomitant]
     Active Substance: PANTOPRAZOLE
  22. PROGESTERONE. [Concomitant]
     Active Substance: PROGESTERONE
  23. SYMBICORT [Concomitant]
     Active Substance: BUDESONIDE\FORMOTEROL FUMARATE DIHYDRATE
  24. ITRACONAZOLE. [Concomitant]
     Active Substance: ITRACONAZOLE

REACTIONS (10)
  - Insurance issue [None]
  - Fatigue [None]
  - Incontinence [None]
  - Condition aggravated [None]
  - Muscle spasms [None]
  - Diarrhoea [None]
  - Drug interaction [None]
  - Exposure during pregnancy [None]
  - Haematochezia [None]
  - Pregnancy [None]
